FAERS Safety Report 5144269-7 (Version None)
Quarter: 2006Q4

REPORT INFORMATION
  Report Type: 
  Country: None (occurrence: None)
  Receive Date: 20061102
  Receipt Date: 20061102
  Transmission Date: 20070319
  Serious: Yes (Hospitalization)
  Sender: FDA-Public Use
  Company Number: None

PATIENT
  Age: 17 Year
  Sex: Female
  Weight: 54.4316 kg

DRUGS (1)
  1. N-ACETYL CYSTEINE -NAC- [Suspect]
     Indication: DRUG TOXICITY
     Dosage: 50MG/KG   INFUSED OVER 4 HR   IV
     Route: 042
     Dates: start: 20061028, end: 20061028

REACTIONS (3)
  - INFUSION RELATED REACTION [None]
  - PRURITUS [None]
  - RASH [None]
